FAERS Safety Report 22190743 (Version 2)
Quarter: 2023Q4

REPORT INFORMATION
  Report Type: Spontaneous
  Country: IT (occurrence: IT)
  Receive Date: 20230410
  Receipt Date: 20231201
  Transmission Date: 20240109
  Serious: Yes (Life-Threatening, Hospitalization, Other)
  Sender: FDA-Public Use
  Company Number: IT-PFIZER INC-PV202200016041

PATIENT
  Age: 19 Year
  Sex: Male

DRUGS (10)
  1. ALPRAZOLAM [Suspect]
     Active Substance: ALPRAZOLAM
     Indication: Product used for unknown indication
     Dosage: 1 MILLIGRAM, ONCE A DAY
     Route: 065
  2. DIAZEPAM [Suspect]
     Active Substance: DIAZEPAM
     Indication: Detoxification
     Dosage: UNK
     Route: 065
  3. PREGABALIN [Suspect]
     Active Substance: PREGABALIN
     Indication: Detoxification
     Dosage: 600 MILLIGRAM, ONCE A DAY (450-600 MG, QD )
     Route: 065
  4. BUPROPION [Suspect]
     Active Substance: BUPROPION
     Indication: Detoxification
     Dosage: UNK
     Route: 065
  5. BACLOFEN [Suspect]
     Active Substance: BACLOFEN
     Indication: Product used for unknown indication
     Dosage: UNK, DAILY
     Route: 048
  6. CHLORDIAZEPOXIDE [Suspect]
     Active Substance: CHLORDIAZEPOXIDE
     Indication: Detoxification
     Dosage: UNK
     Route: 065
  7. METHYLPHENIDATE [Suspect]
     Active Substance: METHYLPHENIDATE
     Indication: Product used for unknown indication
     Dosage: 40 MILLIGRAM, ONCE A DAY (20-40 MG PER DAY)
     Route: 065
  8. 4-AMINO-3-PHENYLBUTYRIC ACID [Suspect]
     Active Substance: 4-AMINO-3-PHENYLBUTYRIC ACID
     Indication: Product used for unknown indication
     Dosage: 1.6 MILLIGRAM, ONCE A DAY
     Route: 048
  9. AMITRIPTYLINE [Concomitant]
     Active Substance: AMITRIPTYLINE
     Indication: Product used for unknown indication
     Dosage: UNK
     Route: 065
  10. OLANZAPINE [Concomitant]
     Active Substance: OLANZAPINE
     Indication: Product used for unknown indication
     Dosage: UNKNOWN
     Route: 065

REACTIONS (15)
  - Seizure [Not Recovered/Not Resolved]
  - Urinary retention [Not Recovered/Not Resolved]
  - Coma [Unknown]
  - Confusional state [Not Recovered/Not Resolved]
  - Suicide attempt [Not Recovered/Not Resolved]
  - Drug abuse [Not Recovered/Not Resolved]
  - Depression [Unknown]
  - Drug withdrawal syndrome [Unknown]
  - Toxicity to various agents [Not Recovered/Not Resolved]
  - Poisoning [Unknown]
  - Substance abuse [Unknown]
  - Off label use [Unknown]
  - Drug ineffective for unapproved indication [Unknown]
  - Psychological abuse [Unknown]
  - Drug ineffective [Unknown]
